FAERS Safety Report 13334141 (Version 1)
Quarter: 2017Q1

REPORT INFORMATION
  Report Type: Spontaneous
  Country: PK (occurrence: PK)
  Receive Date: 20170314
  Receipt Date: 20170314
  Transmission Date: 20170428
  Serious: Yes (Other)
  Sender: FDA-Public Use
  Company Number: PK-SA-2017SA039733

PATIENT
  Age: 35 Year
  Sex: Female

DRUGS (1)
  1. DAONIL [Suspect]
     Active Substance: GLYBURIDE
     Indication: HYPERGLYCAEMIA
     Route: 048
     Dates: start: 2016

REACTIONS (3)
  - Blindness [Not Recovered/Not Resolved]
  - Arthralgia [Not Recovered/Not Resolved]
  - Hyperglycaemia [Not Recovered/Not Resolved]
